FAERS Safety Report 20344676 (Version 2)
Quarter: 2022Q1

REPORT INFORMATION
  Report Type: Spontaneous
  Country: JP (occurrence: JP)
  Receive Date: 20220118
  Receipt Date: 20220127
  Transmission Date: 20220424
  Serious: Yes (Other)
  Sender: FDA-Public Use
  Company Number: JP-NOVARTISPH-NVSC2022JP006950

PATIENT
  Age: 73 Year
  Sex: Female

DRUGS (9)
  1. VOTRIENT [Suspect]
     Active Substance: PAZOPANIB HYDROCHLORIDE
     Indication: Solitary fibrous tumour
     Dosage: 800 MG, QD
     Route: 048
  2. VOTRIENT [Suspect]
     Active Substance: PAZOPANIB HYDROCHLORIDE
     Dosage: 400 MG, QD
     Route: 048
  3. VOTRIENT [Suspect]
     Active Substance: PAZOPANIB HYDROCHLORIDE
     Dosage: 200 MG, QD
     Route: 048
  4. CETUXIMAB [Concomitant]
     Active Substance: CETUXIMAB
     Indication: Solitary fibrous tumour
     Dosage: 10 COURSES
     Route: 065
  5. CETUXIMAB [Concomitant]
     Active Substance: CETUXIMAB
     Indication: Chemotherapy
  6. CISPLATIN [Concomitant]
     Active Substance: CISPLATIN
     Indication: Solitary fibrous tumour
     Dosage: UNK
     Route: 065
  7. CISPLATIN [Concomitant]
     Active Substance: CISPLATIN
     Indication: Chemotherapy
  8. FLUOROURACIL [Concomitant]
     Active Substance: FLUOROURACIL
     Indication: Solitary fibrous tumour
     Dosage: UNK
     Route: 065
  9. FLUOROURACIL [Concomitant]
     Active Substance: FLUOROURACIL
     Indication: Chemotherapy

REACTIONS (7)
  - Thrombocytopenia [Unknown]
  - Solitary fibrous tumour [Unknown]
  - Malignant neoplasm progression [Unknown]
  - Hypertension [Unknown]
  - Hepatic function abnormal [Unknown]
  - Malaise [Unknown]
  - Product use in unapproved indication [Unknown]
